FAERS Safety Report 7742740-2 (Version None)
Quarter: 2011Q3

REPORT INFORMATION
  Report Type: 
  Country: None (occurrence: None)
  Receive Date: 20110912
  Receipt Date: 20110906
  Transmission Date: 20111222
  Serious: Yes (Death, Hospitalization, Other)
  Sender: FDA-Public Use
  Company Number: US-PFIZER INC-2010043794

PATIENT
  Sex: Female
  Weight: 60 kg

DRUGS (11)
  1. CYTOXAN [Suspect]
     Indication: BREAST CANCER
     Dosage: 830 MG, UNK
     Route: 042
     Dates: start: 20100210, end: 20100210
  2. DEXAMETHASONE [Concomitant]
     Dosage: 10 MG, 1X/DAY
     Route: 042
  3. ADRIAMYCIN PFS [Suspect]
     Indication: BREAST CANCER
     Dosage: 83 MG, UNK
     Route: 042
     Dates: start: 20100210, end: 20100210
  4. EMEND [Concomitant]
     Dosage: UNK
     Dates: start: 20100209, end: 20100211
  5. ZOFRAN [Concomitant]
     Dosage: 8 MG, 3X/DAY AS NEEDED
     Dates: start: 20100210, end: 20100210
  6. LORAZEPAM [Concomitant]
     Dosage: 1 MG, 3X/DAY AS NEEDED
  7. COMPAZINE [Concomitant]
     Dosage: 10 MG, 4X/DAY AS NEEDED
     Dates: start: 20100210, end: 20100210
  8. NEULASTA [Concomitant]
     Dosage: 6 MG, 1X/DAY
     Dates: start: 20100211, end: 20100211
  9. FLUOXETINE [Concomitant]
     Dosage: 80 MG, DAILY
  10. TAXOTERE [Suspect]
     Indication: BREAST CANCER
     Dosage: 125 MG, UNK
     Route: 041
     Dates: start: 20100210, end: 20100210
  11. BUSPAR [Concomitant]
     Dosage: 15 MG, DAILY

REACTIONS (9)
  - INTESTINAL PERFORATION [None]
  - ABDOMINAL PAIN [None]
  - WHITE BLOOD CELL COUNT DECREASED [None]
  - NAUSEA [None]
  - VOMITING [None]
  - CAECITIS [None]
  - SEPTIC SHOCK [None]
  - GASTROINTESTINAL NECROSIS [None]
  - SEPSIS [None]
